FAERS Safety Report 5338616-0 (Version None)
Quarter: 2007Q2

REPORT INFORMATION
  Report Type: 
  Country: None (occurrence: None)
  Receive Date: 20070322
  Receipt Date: 20061025
  Transmission Date: 20071010
  Serious: Yes (Other)
  Sender: FDA-Public Use
  Company Number: 200612855BCC

PATIENT
  Age: 60 Year
  Sex: Male
  Weight: 117.9352 kg

DRUGS (9)
  1. ALEVE [Suspect]
     Indication: TENDONITIS
     Dosage: SEE IMAGE
     Route: 048
     Dates: start: 20060615, end: 20060702
  2. ALCOHOL (ETHANOL) [Suspect]
     Dates: start: 20060704
  3. TOPROL-XL [Concomitant]
  4. LISINOPRIL [Concomitant]
  5. ECOTRIN [Concomitant]
  6. HYDROCHLOROTHIAZIDE [Concomitant]
  7. COENZYME Q10 [Concomitant]
  8. ZETIA [Concomitant]
  9. CRESTOR [Concomitant]

REACTIONS (2)
  - FAECES DISCOLOURED [None]
  - GASTRIC HAEMORRHAGE [None]
